FAERS Safety Report 25902638 (Version 1)
Quarter: 2025Q4

REPORT INFORMATION
  Report Type: Spontaneous
  Country: US (occurrence: US)
  Receive Date: 20251009
  Receipt Date: 20251009
  Transmission Date: 20260118
  Serious: No
  Sender: ABBVIE
  Company Number: US-ABBVIE-6494244

PATIENT
  Age: 17 Year
  Sex: Male

DRUGS (1)
  1. SKYRIZI [Suspect]
     Active Substance: RISANKIZUMAB-RZAA
     Indication: Product used for unknown indication
     Dosage: 2 IN 2 MONTHS
     Route: 058
     Dates: start: 202402

REACTIONS (7)
  - Injection site discharge [Unknown]
  - Injection site papule [Recovered/Resolved]
  - Therapeutic response shortened [Not Recovered/Not Resolved]
  - Abdominal pain upper [Recovering/Resolving]
  - Fatigue [Recovering/Resolving]
  - Injection site erythema [Recovered/Resolved]
  - Nausea [Recovered/Resolved]

NARRATIVE: CASE EVENT DATE: 20240201
